FAERS Safety Report 7417705-0 (Version None)
Quarter: 2011Q2

REPORT INFORMATION
  Report Type: 
  Country: None (occurrence: None)
  Receive Date: 20110412
  Receipt Date: 20110412
  Transmission Date: 20111010
  Serious: No
  Sender: FDA-Public Use
  Company Number: None

PATIENT

DRUGS (2)
  1. BENICAL 20 MG. DAIICHI SANKYO [Suspect]
     Dosage: 1 A DAY
  2. BENICAL 40 MG. DAIICHI SANKYO [Suspect]
     Dosage: 1 A DAY

REACTIONS (3)
  - CHEST DISCOMFORT [None]
  - DYSPNOEA [None]
  - DIZZINESS [None]
